FAERS Safety Report 17779529 (Version 1)
Quarter: 2020Q2

REPORT INFORMATION
  Report Type: Spontaneous
  Country: US (occurrence: US)
  Receive Date: 20200514
  Receipt Date: 20200514
  Transmission Date: 20200714
  Serious: No
  Sender: FDA-Public Use
  Company Number: US-DRREDDYS-USA/USA/20/0122680

PATIENT
  Age: 71 Year
  Sex: Female
  Weight: 76.5 kg

DRUGS (3)
  1. IBANDRONATE SODIUM TABLETS 150 MG [Suspect]
     Active Substance: IBANDRONATE SODIUM
     Indication: OSTEOPOROSIS
     Route: 048
     Dates: start: 2020, end: 20200503
  2. SIMVASTATIN. [Concomitant]
     Active Substance: SIMVASTATIN
     Indication: PRODUCT USED FOR UNKNOWN INDICATION
     Route: 065
  3. IBUPROFEN. [Concomitant]
     Active Substance: IBUPROFEN
     Indication: PRODUCT USED FOR UNKNOWN INDICATION
     Route: 065

REACTIONS (12)
  - Toothache [Unknown]
  - Hypoaesthesia [Unknown]
  - Dyspepsia [Unknown]
  - Influenza like illness [Unknown]
  - Peripheral swelling [Unknown]
  - Back pain [Unknown]
  - Abdominal pain upper [Unknown]
  - Headache [Unknown]
  - Myalgia [Unknown]
  - Dyspnoea [Unknown]
  - Decreased appetite [Unknown]
  - Product taste abnormal [Unknown]
